FAERS Safety Report 15425974 (Version 1)
Quarter: 2018Q3

REPORT INFORMATION
  Report Type: Spontaneous
  Country: IT (occurrence: IT)
  Receive Date: 20180925
  Receipt Date: 20180925
  Transmission Date: 20181010
  Serious: Yes (Hospitalization)
  Sender: FDA-Public Use
  Company Number: PHHY2018IT104744

PATIENT
  Age: 7 Year
  Sex: Male

DRUGS (4)
  1. MORNIFLUMATE [Suspect]
     Active Substance: MORNIFLUMATE
     Indication: EAR INFECTION
     Route: 065
  2. CLARITHROMYCIN. [Suspect]
     Active Substance: CLARITHROMYCIN
     Indication: EAR INFECTION
     Route: 065
  3. AMOXICILLIN + CLAVULANATE POTASSIUM [Suspect]
     Active Substance: AMOXICILLIN\CLAVULANATE POTASSIUM
     Indication: EAR INFECTION
     Route: 065
  4. PARACETAMOL [Suspect]
     Active Substance: ACETAMINOPHEN
     Indication: EAR INFECTION
     Dosage: UNK
     Route: 065

REACTIONS (1)
  - Vasculitis [Unknown]
